FAERS Safety Report 4845755-7 (Version None)
Quarter: 2005Q4

REPORT INFORMATION
  Report Type: 
  Country: None (occurrence: None)
  Receive Date: 20051130
  Receipt Date: 20051129
  Transmission Date: 20060501
  Serious: Yes (Other)
  Sender: FDA-Public Use
  Company Number: HQWYE512311NOV05

PATIENT
  Age: 27 Year
  Sex: Male

DRUGS (3)
  1. EFFEXOR XR [Suspect]
     Indication: OBSESSIVE-COMPULSIVE DISORDER
     Dosage: 75 + 150 + 75 MG 1X PER 1 DAY ORAL
     Route: 048
     Dates: start: 20051103, end: 20051101
  2. EFFEXOR XR [Suspect]
     Indication: OBSESSIVE-COMPULSIVE DISORDER
     Dosage: 75 + 150 + 75 MG 1X PER 1 DAY ORAL
     Route: 048
     Dates: start: 20050901, end: 20051102
  3. EFFEXOR [Concomitant]

REACTIONS (2)
  - CONDITION AGGRAVATED [None]
  - SUICIDAL IDEATION [None]
